FAERS Safety Report 7853032 (Version 5)
Quarter: 2013Q4

REPORT INFORMATION
  Report Type: Spontaneous
  Country: GB (occurrence: None)
  Receive Date: 20110214
  Receipt Date: 20131113
  Transmission Date: 20140711
  Serious: Yes (Hospitalization)
  Sender: FDA-Public Use
  Company Number: 2011027566

PATIENT
  Age: 74 Year
  Sex: Male

DRUGS (6)
  1. DALTEPARIN SODIUM [Suspect]
     Indication: LUNG NEOPLASM MALIGNANT
     Route: 058
     Dates: start: 20110117, end: 20110131
  2. CARBOPLATIN [Suspect]
     Dosage: 640 MG, SINGLE, INTRAVENOUS
     Route: 042
     Dates: start: 20110118, end: 20110118
  3. DEXAMETHASONE [Concomitant]
  4. OMEPRAZOLE (OMEPRAZOLE) [Concomitant]
  5. GEMCITABINE (GEMCITAMINE) [Concomitant]
  6. GEMCITABINE (GEMCITABINE) [Concomitant]

REACTIONS (7)
  - Neutropenia [None]
  - Thrombocytopenia [None]
  - Malaise [None]
  - Dyspnoea [None]
  - Haemoglobin decreased [None]
  - Superior vena cava syndrome [None]
  - Infection [None]
